FAERS Safety Report 5269441-7 (Version None)
Quarter: 2007Q1

REPORT INFORMATION
  Report Type: 
  Country: None (occurrence: None)
  Receive Date: 20070320
  Receipt Date: 20070313
  Transmission Date: 20070707
  Serious: Yes (Death)
  Sender: FDA-Public Use
  Company Number: JP-NOVOPROD-261613

PATIENT
  Age: 88 Year
  Sex: Male
  Weight: 40 kg

DRUGS (2)
  1. NOVOSEVEN [Suspect]
     Indication: HAEMORRHAGE
     Dosage: 4.8 MG, BID
     Route: 042
     Dates: start: 20070307, end: 20070307
  2. NOVOSEVEN [Suspect]
     Dosage: 4.8 MG, QD
     Route: 042
     Dates: start: 20070308, end: 20070308

REACTIONS (1)
  - SHOCK HAEMORRHAGIC [None]
